FAERS Safety Report 14446841 (Version 3)
Quarter: 2018Q1

REPORT INFORMATION
  Report Type: Spontaneous
  Country: DE (occurrence: DE)
  Receive Date: 20180126
  Receipt Date: 20180309
  Transmission Date: 20180509
  Serious: Yes (Hospitalization, Other)
  Sender: FDA-Public Use
  Company Number: DE-SA-2018SA013753

PATIENT
  Age: 29 Year
  Sex: Male
  Weight: 78 kg

DRUGS (1)
  1. LEMTRADA [Suspect]
     Active Substance: ALEMTUZUMAB
     Indication: RELAPSING-REMITTING MULTIPLE SCLEROSIS
     Route: 041
     Dates: start: 20170306, end: 20170310

REACTIONS (17)
  - Thyroid stimulating immunoglobulin [Unknown]
  - Red blood cells urine positive [Not Recovered/Not Resolved]
  - Musculoskeletal pain [Unknown]
  - Depression [Unknown]
  - Blood creatinine increased [Recovering/Resolving]
  - Tremor [Unknown]
  - Insomnia [Unknown]
  - Limb discomfort [Unknown]
  - Blood thyroid stimulating hormone decreased [Unknown]
  - Muscular weakness [Unknown]
  - Mood swings [Unknown]
  - Hypothyroidism [Recovering/Resolving]
  - Fatigue [Unknown]
  - Hyperthyroidism [Recovered/Resolved]
  - Renal tubular necrosis [Recovering/Resolving]
  - Kidney congestion [Recovering/Resolving]
  - Anti-glomerular basement membrane antibody [Unknown]

NARRATIVE: CASE EVENT DATE: 2017
